FAERS Safety Report 6942569-9 (Version None)
Quarter: 2010Q3

REPORT INFORMATION
  Report Type: 
  Country: None (occurrence: None)
  Receive Date: 20100823
  Receipt Date: 20100812
  Transmission Date: 20110219
  Serious: Yes (Hospitalization, Disabling)
  Sender: FDA-Public Use
  Company Number: WAES 0907USA04729

PATIENT
  Age: 40 Year
  Sex: Male

DRUGS (11)
  1. ISENTRESS [Suspect]
     Indication: HIV INFECTION
     Dosage: 800 MG/DAILY PO
     Route: 048
     Dates: start: 20090120
  2. COTRIM [Concomitant]
  3. MUCOSTA [Concomitant]
  4. NEOMALLERMIN TR [Concomitant]
  5. NORVIR [Concomitant]
  6. PURSENNID [Concomitant]
  7. REYATAZ [Concomitant]
  8. SEVEN E-P [Concomitant]
  9. TAKEPRON [Concomitant]
  10. TRUVADA [Concomitant]
  11. ANTIHEMOPHILIC FACTOR (HUMAN) [Concomitant]

REACTIONS (4)
  - HAEMOGLOBIN DECREASED [None]
  - HYPOAESTHESIA [None]
  - MYELOPATHY [None]
  - SPUTUM RETENTION [None]
